FAERS Safety Report 17951475 (Version 1)
Quarter: 2020Q2

REPORT INFORMATION
  Report Type: Spontaneous
  Country: GB (occurrence: GB)
  Receive Date: 20200626
  Receipt Date: 20200626
  Transmission Date: 20200714
  Serious: Yes (Other)
  Sender: FDA-Public Use
  Company Number: GB-009507513-2006GBR007043

PATIENT
  Age: 68 Year
  Sex: Female

DRUGS (2)
  1. ZISPIN SOLTAB [Suspect]
     Active Substance: MIRTAZAPINE
     Dosage: PRESCRIBED MIRTAZAPINE ^30MG^ FOR THE PAST 17 YEARS
     Route: 048
     Dates: start: 2003
  2. MIRTAZAPINE. [Suspect]
     Active Substance: MIRTAZAPINE
     Dosage: UNK

REACTIONS (8)
  - Product availability issue [Unknown]
  - Malaise [Unknown]
  - Withdrawal syndrome [Unknown]
  - Dizziness [Unknown]
  - Insomnia [Unknown]
  - Diarrhoea [Unknown]
  - Tremor [Unknown]
  - Mental impairment [Unknown]
